FAERS Safety Report 8960246 (Version 3)
Quarter: 2013Q2

REPORT INFORMATION
  Report Type: Spontaneous
  Country: US (occurrence: US)
  Receive Date: 20121212
  Receipt Date: 20130423
  Transmission Date: 20140414
  Serious: Yes (Hospitalization)
  Sender: FDA-Public Use
  Company Number: US-BAYER-2012-129261

PATIENT
  Age: 17 Year
  Sex: Female
  Weight: 95.24 kg

DRUGS (9)
  1. YAZ [Suspect]
     Indication: PREMENSTRUAL SYNDROME
     Dosage: UNK
     Dates: start: 20070101, end: 200803
  2. YAZ [Suspect]
     Indication: POLYCYSTIC OVARIES
     Dosage: UNK
     Dates: start: 2007, end: 2008
  3. YASMIN [Suspect]
     Indication: POLYCYSTIC OVARIES
  4. ADVAIR [Concomitant]
     Dosage: UNK UNK, BID
     Route: 045
     Dates: start: 20071107
  5. ADVAIR DISKUS [Concomitant]
     Dosage: UNK
     Dates: start: 20071107
  6. ALBUTEROL [Concomitant]
     Indication: DYSPNOEA
     Dosage: UNK UNK, PRN
     Route: 045
  7. XOPENEX [Concomitant]
     Dosage: UNK
     Dates: start: 20080221
  8. LOESTRIN [Concomitant]
     Dosage: UNK
     Dates: start: 20080220, end: 20080321
  9. VENTOLIN HFA [Concomitant]
     Dosage: UNK
     Dates: start: 20071018

REACTIONS (8)
  - Deep vein thrombosis [Recovered/Resolved]
  - Pain [None]
  - Injury [Recovered/Resolved]
  - General physical health deterioration [Recovered/Resolved]
  - Anxiety [None]
  - Anhedonia [None]
  - Emotional distress [None]
  - Pain [Recovered/Resolved]
